FAERS Safety Report 7630175-2 (Version None)
Quarter: 2011Q3

REPORT INFORMATION
  Report Type: 
  Country: None (occurrence: None)
  Receive Date: 20110722
  Receipt Date: 20110708
  Transmission Date: 20111222
  Serious: Yes (Hospitalization, Other)
  Sender: FDA-Public Use
  Company Number: PHHY2011MX61653

PATIENT
  Sex: Female

DRUGS (4)
  1. DIOVAN [Suspect]
     Dosage: 1 DF, PER DAY
     Dates: start: 20110228
  2. AEROFLUX [Concomitant]
     Dosage: UNK UKN, UNK
  3. PENTOXIFYLLINE [Concomitant]
     Dosage: UNK UKN, UNK
  4. DIOVAN [Suspect]
     Indication: HYPERTENSION
     Dosage: 0.5 DF, PER DAY
     Dates: start: 20070208, end: 20110228

REACTIONS (7)
  - AGITATION [None]
  - PULMONARY EMBOLISM [None]
  - ASPHYXIA [None]
  - DIZZINESS [None]
  - PNEUMONIA [None]
  - BLOOD PRESSURE INCREASED [None]
  - WRONG TECHNIQUE IN DRUG USAGE PROCESS [None]
